FAERS Safety Report 19495862 (Version 2)
Quarter: 2022Q3

REPORT INFORMATION
  Report Type: Spontaneous
  Country: US (occurrence: US)
  Receive Date: 20210706
  Receipt Date: 20220806
  Transmission Date: 20221027
  Serious: No
  Sender: FDA-Public Use
  Company Number: US-GSKCCFUS-CASE-01100553_AE-64913

PATIENT
  Age: 76 Year
  Sex: Female

DRUGS (1)
  1. BREO ELLIPTA [Suspect]
     Active Substance: FLUTICASONE FUROATE\VILANTEROL TRIFENATATE
     Indication: Product used for unknown indication
     Dosage: UNK (200/25 UG)
     Route: 055
     Dates: start: 202106

REACTIONS (2)
  - Hyperaesthesia teeth [Unknown]
  - Tooth fracture [Unknown]

NARRATIVE: CASE EVENT DATE: 20210616
